FAERS Safety Report 8560312-7 (Version None)
Quarter: 2012Q3

REPORT INFORMATION
  Report Type: 
  Country: None (occurrence: None)
  Receive Date: 20120802
  Receipt Date: 20120720
  Transmission Date: 20120928
  Serious: Yes (Other)
  Sender: FDA-Public Use
  Company Number: US-ELI_LILLY_AND_COMPANY-US201207007195

PATIENT
  Sex: Male

DRUGS (2)
  1. CYMBALTA [Suspect]
     Dosage: 20 MG, QD
  2. CYMBALTA [Suspect]
     Indication: MAJOR DEPRESSION
     Dosage: 60 MG, QD

REACTIONS (1)
  - BARRETT'S OESOPHAGUS [None]
